FAERS Safety Report 14201062 (Version 2)
Quarter: 2017Q4

REPORT INFORMATION
  Report Type: Spontaneous
  Country: US (occurrence: US)
  Receive Date: 20171117
  Receipt Date: 20171215
  Transmission Date: 20180321
  Serious: Yes (Hospitalization)
  Sender: FDA-Public Use
  Company Number: US-NOVOPROD-564600

PATIENT
  Age: 73 Year
  Weight: 76.64 kg

DRUGS (2)
  1. LEVEMIR [Suspect]
     Active Substance: INSULIN DETEMIR
     Indication: TYPE 1 DIABETES MELLITUS
     Dosage: 32 U, BID
     Route: 058
     Dates: start: 201709
  2. NOVOLOG [Suspect]
     Active Substance: INSULIN ASPART
     Indication: TYPE 1 DIABETES MELLITUS
     Dosage: 2-4 UNITS TID WITH MEALS
     Route: 058
     Dates: start: 201709

REACTIONS (4)
  - Drug ineffective [Recovering/Resolving]
  - Weight decreased [Unknown]
  - Bladder disorder [Not Recovered/Not Resolved]
  - Blood glucose increased [Recovering/Resolving]

NARRATIVE: CASE EVENT DATE: 201709
